FAERS Safety Report 9450041 (Version 1)
Quarter: 2013Q3

REPORT INFORMATION
  Report Type: Spontaneous
  Country: JP (occurrence: JP)
  Receive Date: 20130809
  Receipt Date: 20130809
  Transmission Date: 20140515
  Serious: Yes (Other)
  Sender: FDA-Public Use
  Company Number: JP-ASTELLAS-2013JP008299

PATIENT
  Age: 3 Year
  Sex: Female

DRUGS (3)
  1. TACROLIMUS [Suspect]
     Indication: EOSINOPHILIC PUSTULAR FOLLICULITIS
     Route: 061
  2. CORTICOSTEROID NOS [Concomitant]
     Indication: EOSINOPHILIC PUSTULAR FOLLICULITIS
     Route: 061
  3. INDOMETHACIN                       /00003801/ [Concomitant]
     Indication: EOSINOPHILIC PUSTULAR FOLLICULITIS
     Route: 061

REACTIONS (2)
  - Drug ineffective for unapproved indication [Unknown]
  - Eosinophilic pustular folliculitis [Unknown]
